FAERS Safety Report 16817692 (Version 1)
Quarter: 2019Q3

REPORT INFORMATION
  Report Type: Spontaneous
  Country: US (occurrence: US)
  Receive Date: 20190726
  Receipt Date: 20190726
  Transmission Date: 20191005
  Serious: No
  Sender: FDA-Public Use
  Company Number: None

PATIENT
  Age: 63 Year
  Sex: Male

DRUGS (2)
  1. DIPHENHYDRAMINE. [Suspect]
     Active Substance: DIPHENHYDRAMINE
     Route: 048
     Dates: start: 20160729, end: 20190714
  2. MIRTAZAPINE. [Suspect]
     Active Substance: MIRTAZAPINE
     Route: 048
     Dates: start: 20140303

REACTIONS (13)
  - Bradycardia [None]
  - Endocrine disorder [None]
  - Infection [None]
  - Plasma cell myeloma [None]
  - Sinus bradycardia [None]
  - Sedation [None]
  - Fatigue [None]
  - Cerebral haemorrhage [None]
  - Asthenia [None]
  - Arthralgia [None]
  - Weight decreased [None]
  - Lethargy [None]
  - Decreased appetite [None]

NARRATIVE: CASE EVENT DATE: 20190713
